FAERS Safety Report 25545831 (Version 1)
Quarter: 2025Q3

REPORT INFORMATION
  Report Type: Spontaneous
  Country: EU (occurrence: EU)
  Receive Date: 20250712
  Receipt Date: 20250712
  Transmission Date: 20251021
  Serious: Yes (Other)
  Sender: AMGEN
  Company Number: EU-AMGEN-NLDSP2025132182

PATIENT
  Age: 8 Year
  Sex: Male

DRUGS (6)
  1. XGEVA [Suspect]
     Active Substance: DENOSUMAB
     Indication: Bone giant cell tumour benign
     Route: 026
  2. XGEVA [Suspect]
     Active Substance: DENOSUMAB
     Dosage: UNK, Q4WK (MONTHLY), FOR 2 DOSES
     Route: 026
  3. XGEVA [Suspect]
     Active Substance: DENOSUMAB
     Route: 026
  4. XGEVA [Suspect]
     Active Substance: DENOSUMAB
     Route: 026
  5. CALCIUM [Concomitant]
     Active Substance: CALCIUM
     Dosage: 500 MILLIGRAM, QD
  6. VITAMIN D [Concomitant]
     Active Substance: VITAMIN D NOS
     Dosage: 400 INTERNATIONAL UNIT, QD

REACTIONS (9)
  - Acute kidney injury [Unknown]
  - Nephrocalcinosis [Unknown]
  - Bone giant cell tumour benign [Unknown]
  - Hypercalcaemia [Unknown]
  - Blood parathyroid hormone decreased [Unknown]
  - Vitamin D decreased [Unknown]
  - Urine calcium/creatinine ratio increased [Unknown]
  - Neoplasm [Unknown]
  - Off label use [Unknown]
